FAERS Safety Report 17245823 (Version 2)
Quarter: 2020Q1

REPORT INFORMATION
  Report Type: Spontaneous
  Country: PT (occurrence: PT)
  Receive Date: 20200108
  Receipt Date: 20200114
  Transmission Date: 20200409
  Serious: Yes (Congenital Anomaly)
  Sender: FDA-Public Use
  Company Number: PT-TEVA-2020-PT-1164570

PATIENT
  Sex: Male

DRUGS (4)
  1. EMTRICITABINE W/TENOFOVIR [Suspect]
     Active Substance: EMTRICITABINE\TENOFOVIR DISOPROXIL
     Indication: HIV INFECTION
     Route: 064
  2. DARUNAVIR [Suspect]
     Active Substance: DARUNAVIR
     Indication: HIV INFECTION
     Route: 065
  3. RITONAVIR. [Suspect]
     Active Substance: RITONAVIR
     Indication: HIV INFECTION
     Route: 064
  4. METHADONE [Concomitant]
     Active Substance: METHADONE HYDROCHLORIDE

REACTIONS (2)
  - Foetal exposure during pregnancy [Unknown]
  - Laryngomalacia [Unknown]
